FAERS Safety Report 12492946 (Version 8)
Quarter: 2016Q4

REPORT INFORMATION
  Report Type: Report from Study
  Country: US (occurrence: US)
  Receive Date: 20160623
  Receipt Date: 20161222
  Transmission Date: 20170207
  Serious: Yes (Hospitalization, Other)
  Sender: FDA-Public Use
  Company Number: US-ACTELION-A-US2016-138024

PATIENT
  Age: 62 Year
  Sex: Male

DRUGS (7)
  1. OPSUMIT [Suspect]
     Active Substance: MACITENTAN
     Dosage: 10 MG, QD
     Route: 048
     Dates: start: 20150331
  2. ASPIRIN. [Concomitant]
     Active Substance: ASPIRIN
     Dosage: 81 MG, UNK
  3. APIXABAN [Concomitant]
     Active Substance: APIXABAN
     Dosage: 5 MG, BID
     Dates: start: 20161005
  4. OPSUMIT [Suspect]
     Active Substance: MACITENTAN
     Indication: PULMONARY ARTERIAL HYPERTENSION
     Dosage: 10 MG, QD
     Route: 048
  5. VELETRI [Suspect]
     Active Substance: EPOPROSTENOL
     Indication: PULMONARY ARTERIAL HYPERTENSION
     Dosage: 30 NG/KG, PER MIN
     Route: 042
     Dates: start: 20160310
  6. APIXABAN [Concomitant]
     Active Substance: APIXABAN
     Indication: PRODUCT USED FOR UNKNOWN INDICATION
     Dosage: 10 MG, BID
     Dates: start: 20161004
  7. REVATIO [Concomitant]
     Active Substance: SILDENAFIL CITRATE

REACTIONS (14)
  - Device related infection [Unknown]
  - Suture related complication [Unknown]
  - Catheter placement [Recovered/Resolved]
  - Catheter site haemorrhage [Recovered/Resolved]
  - Fatigue [Unknown]
  - Catheter site pruritus [Recovered/Resolved]
  - Deep vein thrombosis [Recovered/Resolved]
  - Catheter site inflammation [Recovered/Resolved]
  - Catheter site induration [Unknown]
  - Pyloric stenosis [Unknown]
  - Central venous catheterisation [Unknown]
  - Abdominal distension [Unknown]
  - Catheter site cellulitis [Recovered/Resolved]
  - Blood culture negative [Recovered/Resolved]

NARRATIVE: CASE EVENT DATE: 20160615
